FAERS Safety Report 18180029 (Version 1)
Quarter: 2020Q3

REPORT INFORMATION
  Report Type: Spontaneous
  Country: FR (occurrence: FR)
  Receive Date: 20200821
  Receipt Date: 20200821
  Transmission Date: 20201103
  Serious: Yes (Hospitalization, Other)
  Sender: FDA-Public Use
  Company Number: FR-SA-2020SA219540

PATIENT

DRUGS (6)
  1. CLOMID [Suspect]
     Active Substance: CLOMIPHENE CITRATE
     Indication: INFERTILITY
     Dosage: UNKNOWN
     Route: 048
     Dates: start: 1984, end: 1984
  2. CLOMID [Suspect]
     Active Substance: CLOMIPHENE CITRATE
     Dosage: UNKNOWN
     Route: 048
     Dates: start: 1988, end: 1988
  3. HUMEGON [Suspect]
     Active Substance: MENOTROPINS
     Indication: INFERTILITY
     Dosage: UNKNOWN
     Route: 030
     Dates: start: 1984, end: 1984
  4. HUMEGON [Suspect]
     Active Substance: MENOTROPINS
     Dosage: UNKNOWN
     Route: 030
     Dates: start: 1988, end: 1988
  5. GONADOTROPHINE CHORIONIQUE [Suspect]
     Active Substance: GONADOTROPHIN, CHORIONIC
     Dosage: UNKNOWN
     Route: 030
     Dates: start: 1988, end: 1988
  6. GONADOTROPHINE CHORIONIQUE [Suspect]
     Active Substance: GONADOTROPHIN, CHORIONIC
     Indication: INFERTILITY
     Dosage: UNKNOWN
     Route: 030
     Dates: start: 1984, end: 1984

REACTIONS (2)
  - Invasive ductal breast carcinoma [Recovered/Resolved]
  - Invasive ductal breast carcinoma [Recovered/Resolved]

NARRATIVE: CASE EVENT DATE: 2005
